FAERS Safety Report 8764877 (Version 1)
Quarter: 2012Q4

REPORT INFORMATION
  Report Type: 
  Country: US (occurrence: US)
  Receive Date: 20120901
  Receipt Date: 20120901
  Transmission Date: 20130627
  Serious: No
  Sender: FDA-Public Use
  Company Number: US-009507513-1208USA007340

PATIENT

DRUGS (2)
  1. PEGINTRON [Suspect]
     Indication: HEPATITIS C
     Dosage: 150 mg / 0.5 ml, qw
     Route: 058
     Dates: start: 201101
  2. RIBAPAK [Suspect]
     Indication: HEPATITIS C
     Dosage: 600 mg 1 tablet twice a day

REACTIONS (1)
  - Depression [Unknown]
